FAERS Safety Report 12087981 (Version 1)
Quarter: 2016Q1

REPORT INFORMATION
  Report Type: Spontaneous
  Country: US (occurrence: US)
  Receive Date: 20160217
  Receipt Date: 20160217
  Transmission Date: 20160526
  Serious: No
  Sender: FDA-Public Use
  Company Number: US-ALLERGAN-1526123US

PATIENT
  Sex: Female

DRUGS (1)
  1. KYBELLA [Suspect]
     Active Substance: DEOXYCHOLIC ACID
     Indication: FAT TISSUE INCREASED
     Dosage: 2 ML, SINGLE
     Route: 058
     Dates: start: 20151119, end: 20151119

REACTIONS (5)
  - Hyperaesthesia [Unknown]
  - Joint stiffness [Unknown]
  - Pain in jaw [Unknown]
  - Injection site pain [Recovered/Resolved]
  - Muscle tightness [Unknown]

NARRATIVE: CASE EVENT DATE: 20151119
